FAERS Safety Report 17060545 (Version 2)
Quarter: 2019Q4

REPORT INFORMATION
  Report Type: Report from Study
  Country: IT (occurrence: IT)
  Receive Date: 20191121
  Receipt Date: 20191220
  Transmission Date: 20200122
  Serious: Yes (Hospitalization, Other)
  Sender: FDA-Public Use
  Company Number: PHHY2019IT022083

PATIENT
  Age: 38 Year
  Sex: Male
  Weight: 88 kg

DRUGS (8)
  1. DEURSIL [Concomitant]
     Active Substance: URSODIOL
     Indication: CHOLELITHIASIS
     Dosage: 450 MG, UNK
     Route: 048
     Dates: start: 20170731
  2. DOSTINEX [Concomitant]
     Active Substance: CABERGOLINE
     Dosage: 0.5 MG, UNK
     Route: 048
     Dates: start: 20180808, end: 20181210
  3. NEBID [Concomitant]
     Indication: HYPOGONADISM
     Dosage: 1000 MG
     Route: 030
  4. SIGNIFOR LAR [Suspect]
     Active Substance: PASIREOTIDE
     Indication: ACROMEGALY
     Dosage: 60 MG, QMO (28 DAYS)
     Route: 030
     Dates: start: 20170828, end: 20181120
  5. TOSTREX [Concomitant]
     Active Substance: TESTOSTERONE
     Indication: SECONDARY HYPOGONADISM
     Dosage: 2 %, QD
     Route: 065
     Dates: start: 20180924, end: 20181210
  6. SOMAVERT [Concomitant]
     Active Substance: PEGVISOMANT
     Indication: ACROMEGALY
     Dosage: 30 MG, QOD (EVERY OTHER DAY)
     Route: 065
     Dates: start: 20180507
  7. SOMAVERT [Concomitant]
     Active Substance: PEGVISOMANT
     Dosage: 15 MG, UNK
     Route: 058
     Dates: start: 20180807, end: 20181210
  8. DOSTINEX [Concomitant]
     Active Substance: CABERGOLINE
     Indication: ACROMEGALY
     Dosage: 0.5 MG, QW (6 CAPSULES)
     Route: 048
     Dates: start: 20161108

REACTIONS (5)
  - Condition aggravated [Recovered/Resolved]
  - Glucocorticoid deficiency [Not Recovered/Not Resolved]
  - Impaired fasting glucose [Not Recovered/Not Resolved]
  - Acromegaly [Recovered/Resolved]
  - Hyperglycaemia [Unknown]

NARRATIVE: CASE EVENT DATE: 20180410
